FAERS Safety Report 5160102-1 (Version None)
Quarter: 2006Q4

REPORT INFORMATION
  Report Type: 
  Country: None (occurrence: None)
  Receive Date: 20061115
  Receipt Date: 20061026
  Transmission Date: 20070319
  Serious: No
  Sender: FDA-Public Use
  Company Number: US200604001172

PATIENT
  Age: 88 Year
  Sex: Female
  Weight: 43.4 kg

DRUGS (8)
  1. FORTEO [Suspect]
     Indication: OSTEOPOROSIS
     Dosage: 20 UG, DAILY (1/D)
     Dates: start: 20051001, end: 20051222
  2. FORTEO PEN (FORTEO PEN) PEN, DISPOSABLE [Concomitant]
  3. CALCIUM CARBONATE  (CALCIUM CARBONATE) [Concomitant]
  4. PREMARIN [Concomitant]
  5. CYANOCOBALAMIN [Concomitant]
  6. SYNTHROID [Concomitant]
  7. MAXZIDE [Concomitant]
  8. DETROL [Concomitant]

REACTIONS (3)
  - GAIT DISTURBANCE [None]
  - MYALGIA [None]
  - PAIN [None]
